FAERS Safety Report 24743246 (Version 1)
Quarter: 2024Q4

REPORT INFORMATION
  Report Type: Spontaneous
  Country: US (occurrence: US)
  Receive Date: 20241217
  Receipt Date: 20241217
  Transmission Date: 20250114
  Serious: No
  Sender: INCYTE
  Company Number: US-INCYTE CORPORATION-2024IN012949

PATIENT

DRUGS (2)
  1. JAKAFI [Suspect]
     Active Substance: RUXOLITINIB
     Indication: Graft versus host disease
     Dosage: 5MG, TAKE 1 TAB TWICE DAILY TUESDAY AND THURSDAY ONLY
     Route: 048
  2. JAKAFI [Suspect]
     Active Substance: RUXOLITINIB
     Dosage: 5MG, 1 TAB DAILY ON MONDAY, WEDNESDAY, FRIDAY, SATURDAY AND SUNDAY
     Route: 048

REACTIONS (2)
  - Drug hypersensitivity [Unknown]
  - Off label use [Unknown]
